FAERS Safety Report 9150747 (Version 1)
Quarter: 2013Q1

REPORT INFORMATION
  Report Type: Spontaneous
  Country: US (occurrence: US)
  Receive Date: 20130308
  Receipt Date: 20130308
  Transmission Date: 20140127
  Serious: No
  Sender: FDA-Public Use
  Company Number: US-GLAXOSMITHKLINE-A0962624A

PATIENT
  Sex: Female

DRUGS (2)
  1. NICORETTE OTC GUM, ORIGINAL [Suspect]
     Indication: EX-TOBACCO USER
  2. NICORETTE NICOTINE POLACRILEX MINT LOZENGE, 4MG [Suspect]
     Route: 002

REACTIONS (3)
  - Nicotine dependence [Recovered/Resolved]
  - Dysgeusia [Unknown]
  - Product quality issue [Unknown]
